FAERS Safety Report 11533478 (Version 2)
Quarter: 2015Q3

REPORT INFORMATION
  Report Type: Report from Study
  Country: FR (occurrence: FR)
  Receive Date: 20150921
  Receipt Date: 20150923
  Transmission Date: 20151125
  Serious: Yes (Other)
  Sender: FDA-Public Use
  Company Number: FR-JAZZ-2015-FR-013946

PATIENT
  Age: 52 Year
  Sex: Female

DRUGS (3)
  1. XYREM [Suspect]
     Active Substance: SODIUM OXYBATE
     Indication: NARCOLEPSY
     Dosage: 2.5 G, BID
     Route: 048
     Dates: start: 20150811, end: 20150817
  2. XYREM [Suspect]
     Active Substance: SODIUM OXYBATE
     Indication: CATAPLEXY
  3. MODIODAL [Concomitant]
     Active Substance: MODAFINIL
     Indication: PRODUCT USED FOR UNKNOWN INDICATION
     Dosage: UNK

REACTIONS (4)
  - Disorientation [Recovered/Resolved]
  - Hallucination [Recovered/Resolved]
  - Anxiety [Recovered/Resolved]
  - Terminal state [Recovered/Resolved]

NARRATIVE: CASE EVENT DATE: 20150815
